FAERS Safety Report 5710224-9 (Version None)
Quarter: 2008Q2

REPORT INFORMATION
  Report Type: 
  Country: None (occurrence: None)
  Receive Date: 20080418
  Receipt Date: 20080411
  Transmission Date: 20081010
  Serious: Yes (Other)
  Sender: FDA-Public Use
  Company Number: BE-PFIZER INC-2008018826

PATIENT
  Sex: Female
  Weight: 71 kg

DRUGS (6)
  1. LIPITOR [Suspect]
     Indication: HYPERCHOLESTEROLAEMIA
     Route: 048
     Dates: start: 20040519, end: 20080115
  2. ESCITALOPRAM OXALATE [Concomitant]
  3. CREON [Concomitant]
  4. CYMBALTA [Concomitant]
  5. ZOLPIDEM [Concomitant]
  6. MEBEVERINE HYDROCHLORIDE [Concomitant]

REACTIONS (2)
  - LUMBAR SPINAL STENOSIS [None]
  - NEUROPATHY PERIPHERAL [None]
